FAERS Safety Report 9631140 (Version 1)
Quarter: 2013Q4

REPORT INFORMATION
  Report Type: Spontaneous
  Country: GB (occurrence: None)
  Receive Date: 20131015
  Receipt Date: 20131015
  Transmission Date: 20140711
  Serious: Yes (Hospitalization, Other)
  Sender: FDA-Public Use
  Company Number: KAD201310-001337

PATIENT
  Sex: Female

DRUGS (5)
  1. RIBAVIRIN (RIBAVIRIN) [Suspect]
     Indication: HEPATITIS C
     Route: 048
     Dates: start: 20130115
  2. PEGINTERFERON ALFA-2B (PEGINTERFERON ALFA-2B) [Suspect]
     Indication: HEPATITIS C
     Dosage: INJECTION ONCE WEEKLY
     Dates: start: 20130115
  3. INCIVO (TELAPREVIR) [Suspect]
     Indication: HEPATITIS C
     Dosage: THRICE DAILY
     Route: 048
     Dates: start: 20130115, end: 20130409
  4. LOSARTAN [Concomitant]
  5. ONDANSETRON [Concomitant]

REACTIONS (5)
  - Anaemia [None]
  - Cough [None]
  - Flank pain [None]
  - Muscle spasms [None]
  - Nausea [None]
